FAERS Safety Report 24199955 (Version 1)
Quarter: 2024Q3

REPORT INFORMATION
  Report Type: Spontaneous
  Country: CN (occurrence: CN)
  Receive Date: 20240812
  Receipt Date: 20240812
  Transmission Date: 20241017
  Serious: Yes (Hospitalization, Other)
  Sender: PFIZER
  Company Number: CN-PFIZER INC-PV202400102936

PATIENT
  Age: 62 Year
  Sex: Male
  Weight: 55 kg

DRUGS (2)
  1. METHOTREXATE SODIUM [Suspect]
     Active Substance: METHOTREXATE SODIUM
     Indication: Lymphoma
     Dosage: 5.6 G, 1X/DAY
     Route: 041
     Dates: start: 20240708, end: 20240708
  2. DEXTROSE [Concomitant]
     Active Substance: DEXTROSE\DEXTROSE MONOHYDRATE
     Indication: Vehicle solution use
     Dosage: 1000 ML, 1X/DAY
     Route: 041
     Dates: start: 20240708, end: 20240708

REACTIONS (9)
  - Blood creatinine increased [Recovering/Resolving]
  - Skin ulcer [Recovering/Resolving]
  - Skin discolouration [Recovering/Resolving]
  - Mouth haemorrhage [Recovering/Resolving]
  - Oral mucosa erosion [Recovering/Resolving]
  - Scrotal ulcer [Recovering/Resolving]
  - Urethral ulcer [Recovering/Resolving]
  - Scrotal haemorrhage [Recovering/Resolving]
  - Urethral haemorrhage [Recovering/Resolving]

NARRATIVE: CASE EVENT DATE: 20240715
